FAERS Safety Report 8406783-8 (Version None)
Quarter: 2012Q2

REPORT INFORMATION
  Report Type: 
  Country: None (occurrence: None)
  Receive Date: 20120604
  Receipt Date: 20120601
  Transmission Date: 20120825
  Serious: Yes (Other)
  Sender: FDA-Public Use
  Company Number: US-PFIZER INC-2012132722

PATIENT
  Age: 62 Year
  Sex: Female
  Weight: 49.9 kg

DRUGS (6)
  1. CELEBREX [Suspect]
     Indication: BACK PAIN
     Dosage: 200 MG, 2X/DAY
     Route: 048
     Dates: start: 20080101
  2. CALCIUM WITH VITAMIN D [Concomitant]
     Dosage: UNK
  3. CELEBREX [Suspect]
     Indication: MUSCULOSKELETAL PAIN
     Dosage: 200 MG, DAILY
     Route: 048
     Dates: start: 20080101, end: 20110101
  4. CELEBREX [Suspect]
     Dosage: 200 MG, DAILY
     Route: 048
     Dates: start: 20120522
  5. ACTONEL [Concomitant]
     Indication: OSTEOARTHRITIS
     Dosage: 35 MG, WEEKLY
  6. CELEBREX [Suspect]
     Dosage: 200 MG, DAILY
     Route: 048
     Dates: start: 20120531

REACTIONS (4)
  - DISCOMFORT [None]
  - ABDOMINAL DISCOMFORT [None]
  - APHAGIA [None]
  - MIDDLE INSOMNIA [None]
